FAERS Safety Report 25690765 (Version 1)
Quarter: 2025Q3

REPORT INFORMATION
  Report Type: Spontaneous
  Country: US (occurrence: None)
  Receive Date: 20250817
  Receipt Date: 20250817
  Transmission Date: 20251020
  Serious: Yes (Other)
  Sender: FDA-CTU
  Company Number: None

PATIENT
  Age: 81 Year
  Sex: Female
  Weight: 82.8 kg

DRUGS (1)
  1. PROCRIT [Suspect]
     Active Substance: ERYTHROPOIETIN
     Route: 030

REACTIONS (5)
  - Product communication issue [None]
  - Syringe issue [None]
  - Product administration error [None]
  - Product preparation error [None]
  - Product availability issue [None]

NARRATIVE: CASE EVENT DATE: 20250815
